FAERS Safety Report 21637302 (Version 1)
Quarter: 2022Q4

REPORT INFORMATION
  Report Type: Spontaneous
  Country: US (occurrence: US)
  Receive Date: 20221124
  Receipt Date: 20221124
  Transmission Date: 20230113
  Serious: Yes (Other)
  Sender: FDA-Public Use
  Company Number: US-UNITED THERAPEUTICS-UNT-2022-028092

PATIENT
  Sex: Female

DRUGS (4)
  1. TYVASO [Suspect]
     Active Substance: TREPROSTINIL
     Indication: Pulmonary arterial hypertension
     Dosage: UNK
  2. TYVASO [Suspect]
     Active Substance: TREPROSTINIL
     Dosage: UNK (DOSES WERE DECREASED DURING TRANSITION)
  3. TYVASO [Suspect]
     Active Substance: TREPROSTINIL
     Dosage: UNK (RESTARTED DOSE)
  4. SELEXIPAG [Suspect]
     Active Substance: SELEXIPAG
     Indication: Pulmonary arterial hypertension
     Dosage: UNK (WEEKLY INCREASES IN DOSES RANGING FROM 50-200 ?G), BID
     Route: 048

REACTIONS (2)
  - Acute right ventricular failure [Recovering/Resolving]
  - Viral infection [Recovering/Resolving]
